FAERS Safety Report 8236763-7 (Version None)
Quarter: 2012Q1

REPORT INFORMATION
  Report Type: 
  Country: None (occurrence: None)
  Receive Date: 20120309
  Receipt Date: 20101203
  Transmission Date: 20120608
  Serious: Yes (Other)
  Sender: FDA-Public Use
  Company Number: PHHY2010US45050

PATIENT
  Age: 40 Year
  Sex: Female

DRUGS (12)
  1. LISINOPRIL [Concomitant]
  2. NEXIUM [Concomitant]
  3. DEPAKOTE (VALPROATE SEMISOSODIUM) [Concomitant]
  4. EXTAVIA [Suspect]
     Indication: MULTIPLE SCLEROSIS
     Dosage: 0.062 MG, EVERY OTHER DAY,SUBCUTANEOUS 0.25 MG, QOD, SUBCUTANEOUS
     Route: 058
     Dates: start: 20100701
  5. NOVELLA [Concomitant]
  6. GABAPENTIN [Concomitant]
  7. VALIUM [Concomitant]
  8. PROVENTIL [Concomitant]
  9. PAXIL [Concomitant]
  10. ADVAIR (FLUTICASONE PROPIONATE, SALMETEROL XINAFOATE) INHALER [Concomitant]
  11. AVINZA [Concomitant]
  12. VICODIN ES (HYRDOCODONE BITARTRATE, PARACETAMOL) [Concomitant]

REACTIONS (10)
  - MULTIPLE SCLEROSIS RELAPSE [None]
  - INJECTION SITE ERYTHEMA [None]
  - PAIN [None]
  - FATIGUE [None]
  - NAUSEA [None]
  - VISION BLURRED [None]
  - SKIN DISCOMFORT [None]
  - RASH PRURITIC [None]
  - HEADACHE [None]
  - INJECTION SITE PRURITUS [None]
